FAERS Safety Report 7648619-9 (Version None)
Quarter: 2011Q3

REPORT INFORMATION
  Report Type: 
  Country: None (occurrence: None)
  Receive Date: 20110801
  Receipt Date: 20110718
  Transmission Date: 20111222
  Serious: Yes (Other)
  Sender: FDA-Public Use
  Company Number: PHHY2011BR65703

PATIENT
  Sex: Female

DRUGS (7)
  1. PROPAFENONE HYDROCHLORIDE [Concomitant]
     Indication: ARRHYTHMIA
     Dosage: 1 TABLET A DAY
     Route: 048
  2. BAMIFIX [Concomitant]
     Indication: ASTHMA
     Dosage: 2 TABLETS A DAY
     Route: 048
  3. LEVOTHYROXINE SODIUM [Concomitant]
     Indication: HYPOTHYROIDISM
     Dosage: 1 TABLET A DAY
     Route: 048
  4. BALCOR [Concomitant]
     Indication: HYPERTENSION
     Dosage: 2 TABLETS A DAY
     Route: 048
  5. DIOVAN HCT [Suspect]
     Indication: HYPERTENSION
     Dosage: 2 DF A DAY
     Route: 048
  6. DILTIAZEM HYDROCHLORIDE [Concomitant]
     Indication: HYPERTENSION
     Dosage: 1 TABLET OF 30MG AND 1 TABLET OF 60MG TWICE DAILY
  7. SIMVASTATIN [Concomitant]
     Indication: BLOOD CHOLESTEROL INCREASED
     Dosage: 1 TABLET A DAY
     Route: 048

REACTIONS (4)
  - FALL [None]
  - LOWER LIMB FRACTURE [None]
  - PAIN [None]
  - RIB FRACTURE [None]
